FAERS Safety Report 7383224-3 (Version None)
Quarter: 2011Q1

REPORT INFORMATION
  Report Type: 
  Country: None (occurrence: None)
  Receive Date: 20110325
  Receipt Date: 20110325
  Transmission Date: 20110831
  Serious: Yes (Hospitalization)
  Sender: FDA-Public Use
  Company Number: None

PATIENT
  Age: 72 Year
  Sex: Male
  Weight: 86 kg

DRUGS (12)
  1. ASPIRIN [Suspect]
     Indication: CORONARY ARTERY DISEASE
     Dosage: 81 MG DAILY PO CHRONIC
     Route: 048
  2. CENTRUM SILVER [Concomitant]
  3. PRILOSEC [Concomitant]
  4. SIMVASTATIN [Concomitant]
  5. CARAFATE [Concomitant]
  6. DOFETILIDE [Concomitant]
  7. OMACOR [Concomitant]
  8. HYDROCODONE BITARTRATE AND ACETAMINOPHEN [Concomitant]
  9. MAG OX [Concomitant]
  10. AMBIEN CR [Concomitant]
  11. COUMADIN [Suspect]
     Indication: CORONARY ARTERY DISEASE
     Dosage: 2MG/2.5MG SMWF/THS PO CHRONIC
     Route: 048
  12. SERTRALINE HYDROCHLORIDE [Concomitant]

REACTIONS (3)
  - LOCAL SWELLING [None]
  - GROIN PAIN [None]
  - POST PROCEDURAL HAEMATOMA [None]
